FAERS Safety Report 4289022-1 (Version None)
Quarter: 2004Q1

REPORT INFORMATION
  Report Type: 
  Country: None (occurrence: None)
  Receive Date: 20040204
  Receipt Date: 20021206
  Transmission Date: 20041129
  Serious: No
  Sender: FDA-Public Use
  Company Number: 10020266-C557660-1

PATIENT
  Age: 47 Year
  Sex: Male
  Weight: 70 kg

DRUGS (1)
  1. 2B1094 - 5% DEX AND 0.2% SOD CHL INJ, SP [Suspect]
     Indication: HYPOTENSION
     Dosage: 200 ML, INTRAVENOUSLY
     Route: 042

REACTIONS (1)
  - HYPERGLYCAEMIA [None]
